FAERS Safety Report 8548163-0 (Version None)
Quarter: 2012Q3

REPORT INFORMATION
  Report Type: 
  Country: None (occurrence: None)
  Receive Date: 20120730
  Receipt Date: 20120720
  Transmission Date: 20120928
  Serious: Yes (Hospitalization)
  Sender: FDA-Public Use
  Company Number: US-BIOGENIDEC-2011BI003136

PATIENT
  Sex: Female

DRUGS (2)
  1. AVONEX [Suspect]
     Route: 030
     Dates: start: 20030101
  2. AVONEX [Suspect]
     Indication: MULTIPLE SCLEROSIS
     Route: 030
     Dates: start: 19990421, end: 20030101

REACTIONS (7)
  - UTERINE CANCER [None]
  - SCAR [None]
  - UTERINE LEIOMYOMA [None]
  - DIZZINESS [None]
  - ENDOMETRIOSIS [None]
  - OVARIAN CYST [None]
  - MENORRHAGIA [None]
